APPROVED DRUG PRODUCT: THIORIDAZINE HYDROCHLORIDE
Active Ingredient: THIORIDAZINE HYDROCHLORIDE
Strength: 25MG
Dosage Form/Route: TABLET;ORAL
Application: A088336 | Product #001
Applicant: PAR PHARMACEUTICAL INC
Approved: Dec 5, 1983 | RLD: No | RS: No | Type: DISCN